FAERS Safety Report 10102989 (Version 1)
Quarter: 2014Q2

REPORT INFORMATION
  Report Type: Spontaneous
  Country: US (occurrence: US)
  Receive Date: 20140424
  Receipt Date: 20140424
  Transmission Date: 20141212
  Serious: No
  Sender: FDA-Public Use
  Company Number: US-BRISTOL-MYERS SQUIBB COMPANY-20039780

PATIENT
  Age: 69 Year
  Sex: Male

DRUGS (11)
  1. ELIQUIS [Suspect]
  2. SYMBICORT [Concomitant]
  3. GLYBURIDE [Concomitant]
  4. TERAZOSIN [Concomitant]
  5. METFORMIN [Concomitant]
  6. LANTUS [Concomitant]
  7. BYETTA [Concomitant]
  8. BENICAR [Concomitant]
  9. POTASSIUM [Concomitant]
  10. FUROSEMIDE [Concomitant]
  11. VITAMINS [Concomitant]

REACTIONS (3)
  - Dizziness [Recovered/Resolved]
  - Dyspnoea [Recovered/Resolved]
  - Fatigue [Recovered/Resolved]
